FAERS Safety Report 11193709 (Version 1)
Quarter: 2015Q2

REPORT INFORMATION
  Report Type: Spontaneous
  Country: CA (occurrence: CA)
  Receive Date: 20150616
  Receipt Date: 20150616
  Transmission Date: 20150821
  Serious: Yes (Other)
  Sender: FDA-Public Use
  Company Number: CA-TEVA-571143ACC

PATIENT
  Age: 30 Year
  Sex: Male

DRUGS (1)
  1. TEVA-QUETIAPINE XR [Suspect]
     Active Substance: QUETIAPINE
     Indication: SCHIZOPHRENIA
     Dosage: 600 MILLIGRAM DAILY;
     Route: 048

REACTIONS (3)
  - Dependence [Unknown]
  - Condition aggravated [Unknown]
  - Product substitution issue [Unknown]
